FAERS Safety Report 5027891-8 (Version None)
Quarter: 2006Q2

REPORT INFORMATION
  Report Type: 
  Country: None (occurrence: None)
  Receive Date: 20060616
  Receipt Date: 20060608
  Transmission Date: 20061013
  Serious: Yes (Other)
  Sender: FDA-Public Use
  Company Number: US-ROCHE-451302

PATIENT
  Age: 52 Year
  Sex: Male

DRUGS (8)
  1. FUZEON [Suspect]
     Dosage: ROUTE REPORTED AS INJECTABLE.
     Route: 050
  2. TRUVADA [Concomitant]
     Route: 048
  3. KALETRA [Concomitant]
     Route: 048
  4. LEXIVA [Concomitant]
     Route: 048
  5. REMERON [Concomitant]
     Indication: DEPRESSION
  6. WELLBUTRIN [Concomitant]
     Indication: DEPRESSION
  7. CARBIDOPA AND LEVODOPA [Concomitant]
  8. AMPHETAMINE [Concomitant]

REACTIONS (3)
  - DEMENTIA [None]
  - INJECTION SITE ABSCESS [None]
  - INJECTION SITE MASS [None]
